FAERS Safety Report 12318704 (Version 3)
Quarter: 2016Q2

REPORT INFORMATION
  Report Type: Report from Study
  Country: JP (occurrence: JP)
  Receive Date: 20160429
  Receipt Date: 20160511
  Transmission Date: 20160815
  Serious: Yes (Hospitalization)
  Sender: FDA-Public Use
  Company Number: JP-CELGENEUS-JPN-2016040717

PATIENT
  Age: 75 Year
  Sex: Male
  Weight: 65.9 kg

DRUGS (12)
  1. REVLIMID [Suspect]
     Active Substance: LENALIDOMIDE
     Indication: PLASMA CELL MYELOMA
     Route: 048
     Dates: start: 20150929, end: 20151010
  2. MAGLAX [Concomitant]
     Active Substance: MAGNESIUM OXIDE
     Indication: PRODUCT USED FOR UNKNOWN INDICATION
     Dosage: 10 MILLIGRAM
     Route: 048
  3. AMLODIPINE [Concomitant]
     Active Substance: AMLODIPINE BESYLATE
     Indication: PRODUCT USED FOR UNKNOWN INDICATION
     Route: 048
     Dates: start: 20151004
  4. DEXAMETHASONE. [Suspect]
     Active Substance: DEXAMETHASONE
     Indication: PLASMA CELL MYELOMA
     Route: 048
     Dates: start: 20150929, end: 20151104
  5. DEXAMETHASONE. [Suspect]
     Active Substance: DEXAMETHASONE
     Dosage: 1000 MILLIGRAM
     Route: 048
     Dates: end: 20160323
  6. REVLIMID [Suspect]
     Active Substance: LENALIDOMIDE
     Route: 048
     Dates: start: 20151015, end: 20151106
  7. UREA. [Concomitant]
     Active Substance: UREA
     Indication: PRODUCT USED FOR UNKNOWN INDICATION
     Route: 065
  8. REVLIMID [Suspect]
     Active Substance: LENALIDOMIDE
     Route: 048
     Dates: start: 20151117, end: 20160328
  9. KARY UNI [Concomitant]
     Active Substance: PIRENOXINE
     Indication: PRODUCT USED FOR UNKNOWN INDICATION
     Route: 065
     Dates: start: 201412
  10. HYALONSAN [Concomitant]
     Indication: PRODUCT USED FOR UNKNOWN INDICATION
     Route: 065
     Dates: start: 201412
  11. VALSARTAN. [Concomitant]
     Active Substance: VALSARTAN
     Indication: PRODUCT USED FOR UNKNOWN INDICATION
     Route: 048
     Dates: start: 20151004
  12. FLUITRAN [Concomitant]
     Active Substance: TRICHLORMETHIAZIDE
     Indication: PRODUCT USED FOR UNKNOWN INDICATION
     Route: 048
     Dates: start: 20151008

REACTIONS (2)
  - Anaphylactic reaction [Recovered/Resolved]
  - Rash maculo-papular [Recovered/Resolved]

NARRATIVE: CASE EVENT DATE: 20151010
